FAERS Safety Report 7166761-6 (Version None)
Quarter: 2010Q4

REPORT INFORMATION
  Report Type: 
  Country: None (occurrence: None)
  Receive Date: 20101216
  Receipt Date: 20101208
  Transmission Date: 20110411
  Serious: Yes (Other)
  Sender: FDA-Public Use
  Company Number: US-JNJFOC-20101204058

PATIENT
  Sex: Female
  Weight: 63.05 kg

DRUGS (3)
  1. LEVAQUIN [Suspect]
     Indication: BRONCHITIS
     Route: 048
  2. AMITRIPTYLINE [Concomitant]
     Indication: IRRITABLE BOWEL SYNDROME
     Dosage: AT NIGHT
     Route: 048
  3. LEVOXYL [Concomitant]
     Indication: HYPOTHYROIDISM
     Route: 048

REACTIONS (6)
  - FEELING COLD [None]
  - HYPOAESTHESIA [None]
  - JOINT CREPITATION [None]
  - PAIN IN EXTREMITY [None]
  - PARAESTHESIA [None]
  - SKIN DISCOLOURATION [None]
